FAERS Safety Report 11940507 (Version 1)
Quarter: 2016Q1

REPORT INFORMATION
  Report Type: Spontaneous
  Country: US (occurrence: US)
  Receive Date: 20160122
  Receipt Date: 20160122
  Transmission Date: 20160526
  Serious: No
  Sender: FDA-Public Use
  Company Number: US-DYAX CORP.-2015DX000468

PATIENT
  Age: 50 Year
  Sex: Female
  Weight: 72.64 kg

DRUGS (8)
  1. FIRAZYR [Concomitant]
     Active Substance: ICATIBANT ACETATE
     Indication: HEREDITARY ANGIOEDEMA
     Route: 058
  2. ALLEGRA [Concomitant]
     Active Substance: FEXOFENADINE HYDROCHLORIDE
     Indication: PRODUCT USED FOR UNKNOWN INDICATION
     Route: 048
  3. KALBITOR [Suspect]
     Active Substance: ECALLANTIDE
     Route: 058
  4. KALBITOR [Suspect]
     Active Substance: ECALLANTIDE
     Indication: HEREDITARY ANGIOEDEMA
     Route: 058
     Dates: start: 20151025, end: 20151025
  5. SUMATRIPTAN. [Concomitant]
     Active Substance: SUMATRIPTAN
     Indication: HEREDITARY ANGIOEDEMA
  6. PREDNISONE. [Concomitant]
     Active Substance: PREDNISONE
     Indication: ARTHRITIS
     Route: 048
  7. SUMATRIPTAN. [Concomitant]
     Active Substance: SUMATRIPTAN
     Indication: MIGRAINE
     Route: 048
  8. PROZAC [Concomitant]
     Active Substance: FLUOXETINE HYDROCHLORIDE
     Indication: PRODUCT USED FOR UNKNOWN INDICATION
     Route: 048

REACTIONS (7)
  - Hereditary angioedema [Recovered/Resolved]
  - Abdominal pain [Recovered/Resolved]
  - Fatigue [Not Recovered/Not Resolved]
  - Migraine [Recovered/Resolved]
  - Drug administration error [Unknown]
  - Swelling face [Recovered/Resolved]
  - Paraesthesia [Recovered/Resolved]

NARRATIVE: CASE EVENT DATE: 20151025
